FAERS Safety Report 9760119 (Version 1)
Quarter: 2013Q4

REPORT INFORMATION
  Report Type: Spontaneous
  Country: CN (occurrence: CN)
  Receive Date: 20131216
  Receipt Date: 20131216
  Transmission Date: 20140711
  Serious: Yes (Other)
  Sender: FDA-Public Use
  Company Number: CN-JNJFOC-20131205178

PATIENT
  Age: 30 Year
  Sex: Female

DRUGS (1)
  1. TOPAMAX [Suspect]
     Indication: EPILEPSY
     Dosage: 25 MG X 60 TABLETS
     Route: 048
     Dates: start: 20131204

REACTIONS (3)
  - Drug ineffective [Recovered/Resolved]
  - Product counterfeit [Unknown]
  - Dizziness [Recovered/Resolved]
